FAERS Safety Report 5569158-5 (Version None)
Quarter: 2007Q4

REPORT INFORMATION
  Report Type: 
  Country: None (occurrence: None)
  Receive Date: 20071220
  Receipt Date: 20070807
  Transmission Date: 20080405
  Serious: No
  Sender: FDA-Public Use
  Company Number: A0668694A

PATIENT
  Age: 87 Year
  Sex: Male

DRUGS (4)
  1. AVODART [Suspect]
     Dosage: .5MG ALTERNATE DAYS
     Route: 048
     Dates: start: 20070720
  2. CADUET [Concomitant]
  3. BENICAR [Concomitant]
  4. CATAPRES [Concomitant]

REACTIONS (3)
  - FATIGUE [None]
  - HYPOTENSION [None]
  - PAIN [None]
